FAERS Safety Report 19450719 (Version 5)
Quarter: 2021Q3

REPORT INFORMATION
  Report Type: Report from Study
  Country: US (occurrence: US)
  Receive Date: 20210622
  Receipt Date: 20210915
  Transmission Date: 20211014
  Serious: Yes (Hospitalization)
  Sender: FDA-Public Use
  Company Number: US-AMGEN-USACT2021093422

PATIENT
  Age: 71 Year
  Sex: Female
  Weight: 111 kg

DRUGS (33)
  1. PANTOPRAZOLE [Concomitant]
     Active Substance: PANTOPRAZOLE
     Dosage: 40 MILLIGRAM
     Route: 048
     Dates: start: 20201022, end: 20210622
  2. DERMA SMOOTH [Concomitant]
     Dosage: 0.01 UNK
     Route: 061
     Dates: start: 20210505, end: 20210621
  3. AMMONIUM LACTATE. [Concomitant]
     Active Substance: AMMONIUM LACTATE
     Dosage: 12 UNK
     Route: 061
     Dates: start: 20210526, end: 20210622
  4. RIVAROXABAN [Concomitant]
     Active Substance: RIVAROXABAN
     Dosage: 20 MILLIGRAM
     Route: 048
     Dates: start: 2021, end: 2021
  5. AMLODIPINE [Concomitant]
     Active Substance: AMLODIPINE BESYLATE
     Dosage: 5 MILLIGRAM
     Route: 048
     Dates: start: 20200512, end: 20210622
  6. PANITUMUMAB [Suspect]
     Active Substance: PANITUMUMAB
     Indication: K-RAS GENE MUTATION
     Dosage: 500 MILLIGRAM
     Route: 042
     Dates: start: 20210413, end: 20210622
  7. OLANZAPINE. [Concomitant]
     Active Substance: OLANZAPINE
     Dosage: 2.5 MILLIGRAM
     Route: 048
     Dates: start: 20210428, end: 20210621
  8. LAC HYDRIN [Concomitant]
     Dosage: 12 UNK
     Route: 061
     Dates: start: 20210428, end: 20210602
  9. ZINC OXIDE. [Concomitant]
     Active Substance: ZINC OXIDE
     Dosage: UNK
     Route: 061
     Dates: start: 20210428, end: 20210526
  10. TRAMADOL. [Concomitant]
     Active Substance: TRAMADOL
     Dosage: 50 MILLIGRAM
     Route: 048
     Dates: start: 20200312
  11. AMG 510 [Suspect]
     Active Substance: AMG-510
     Indication: K-RAS GENE MUTATION
     Dosage: UNK
     Route: 048
  12. LASIX [Concomitant]
     Active Substance: FUROSEMIDE
     Dosage: 20 MILLIGRAM, QD
     Route: 048
     Dates: start: 20210608
  13. LIDOCAINE AND PRILOCAINE [Concomitant]
     Active Substance: LIDOCAINE\PRILOCAINE
     Dosage: 2.5 UNK
     Route: 061
     Dates: start: 20200115, end: 20210621
  14. AMG 510 [Suspect]
     Active Substance: AMG-510
     Indication: COLORECTAL ADENOCARCINOMA
     Dosage: 960 MILLIGRAM
     Route: 048
     Dates: start: 20210413
  15. MINOCYCLINE [Concomitant]
     Active Substance: MINOCYCLINE HYDROCHLORIDE
     Dosage: 100 MILLIGRAM, BID
     Route: 048
     Dates: start: 20210507
  16. ESCITALOPRAM [Concomitant]
     Active Substance: ESCITALOPRAM OXALATE
     Dosage: 10 MILLIGRAM
     Route: 048
     Dates: start: 20210326, end: 20210622
  17. ALBUTEROL [SALBUTAMOL] [Concomitant]
     Active Substance: ALBUTEROL
     Dosage: 90 MICROGRAM AND 2 OTHER
     Route: 048
     Dates: start: 20210419, end: 20210616
  18. ALA CORT [Concomitant]
     Dosage: 1 UNK
     Route: 061
     Dates: start: 20210503, end: 20210526
  19. MONTELUKAST [Concomitant]
     Active Substance: MONTELUKAST SODIUM
     Dosage: 10 MILLIGRAM
     Route: 048
     Dates: start: 20200512
  20. SILVER SULFADIAZINE. [Concomitant]
     Active Substance: SILVER SULFADIAZINE
     Dosage: 1 UNK
     Route: 061
     Dates: start: 20210505, end: 20210526
  21. LORAZEPAM. [Concomitant]
     Active Substance: LORAZEPAM
     Dosage: 0.5 MILLIGRAM
     Route: 048
     Dates: start: 20180725
  22. IMODIUM [Concomitant]
     Active Substance: LOPERAMIDE HYDROCHLORIDE
     Dosage: 2 MILLIGRAM
     Route: 048
     Dates: start: 20200917
  23. LOMOTIL [LOPERAMIDE HYDROCHLORIDE] [Concomitant]
     Active Substance: LOPERAMIDE HYDROCHLORIDE
     Dosage: 2.5 MILLIGRAM
     Route: 048
     Dates: start: 20200917
  24. DOXYCYCLINE HYCLATE. [Concomitant]
     Active Substance: DOXYCYCLINE HYCLATE
     Dosage: 100 MILLIGRAM
     Route: 048
     Dates: start: 20210412, end: 20210526
  25. ONDANSETRON [Concomitant]
     Active Substance: ONDANSETRON
     Dosage: 8 MILLIGRAM
     Route: 048
     Dates: start: 20210412, end: 20210617
  26. NYAMYC [Concomitant]
     Active Substance: NYSTATIN
     Dosage: 100000 UNK
     Route: 061
     Dates: start: 20210428, end: 20210617
  27. CALCIUM [Concomitant]
     Active Substance: CALCIUM
     Dosage: 250 MILLIGRAM
     Route: 048
     Dates: start: 20210326
  28. CLEOCIN T [Concomitant]
     Active Substance: CLINDAMYCIN PHOSPHATE
     Dosage: 1 UNK
     Route: 061
     Dates: start: 20210503, end: 20210526
  29. LOSARTAN. [Concomitant]
     Active Substance: LOSARTAN
     Dosage: 100 MILLIGRAM
     Route: 048
     Dates: start: 20200512, end: 20210622
  30. PANITUMUMAB [Suspect]
     Active Substance: PANITUMUMAB
     Indication: COLORECTAL ADENOCARCINOMA
  31. XARELTO [Concomitant]
     Active Substance: RIVAROXABAN
     Dosage: 20 MILLIGRAM
     Route: 048
     Dates: start: 20200701
  32. TRIAMCINOLONE [Concomitant]
     Active Substance: TRIAMCINOLONE
     Dosage: 0.1 UNK
     Route: 061
     Dates: start: 20210505, end: 20210622
  33. LEVOTHYROXINE. [Concomitant]
     Active Substance: LEVOTHYROXINE
     Dosage: 50 MICROGRAM
     Route: 048
     Dates: start: 20200512

REACTIONS (3)
  - Cellulitis [Recovered/Resolved]
  - Dermatitis acneiform [Recovered/Resolved]
  - Oedema peripheral [Recovered/Resolved]

NARRATIVE: CASE EVENT DATE: 20210615
